FAERS Safety Report 14663393 (Version 1)
Quarter: 2018Q1

REPORT INFORMATION
  Report Type: Spontaneous
  Country: US (occurrence: US)
  Receive Date: 20180319
  Receipt Date: 20180319
  Transmission Date: 20180509
  Serious: No
  Sender: FDA-Public Use
  Company Number: None

PATIENT
  Age: 69 Year
  Sex: Female

DRUGS (1)
  1. HARVONI [Suspect]
     Active Substance: LEDIPASVIR\SOFOSBUVIR
     Indication: HEPATITIS C
     Dosage: 90/400MG ONCE DIALY ORAL
     Route: 048
     Dates: start: 20171226

REACTIONS (4)
  - Diarrhoea [None]
  - Abdominal pain upper [None]
  - Abdominal distension [None]
  - Flatulence [None]

NARRATIVE: CASE EVENT DATE: 20180226
